FAERS Safety Report 19168765 (Version 1)
Quarter: 2021Q2

REPORT INFORMATION
  Report Type: Spontaneous
  Country: US (occurrence: US)
  Receive Date: 20210422
  Receipt Date: 20210422
  Transmission Date: 20210717
  Serious: Yes (Other)
  Sender: FDA-Public Use
  Company Number: US-BIO PRODUCTS LABORATORY LTD-2109630

PATIENT
  Age: 51 Year
  Sex: Female

DRUGS (8)
  1. HUMAN NORMAL IMMUNOGLOBULIN [Suspect]
     Active Substance: HUMAN IMMUNOGLOBULIN G
     Route: 042
  2. TACROLIMUS. [Concomitant]
     Active Substance: TACROLIMUS
  3. TOCILIZUMAB. [Concomitant]
     Active Substance: TOCILIZUMAB
  4. PREDNISONE. [Concomitant]
     Active Substance: PREDNISONE
  5. MYCOPHENOLATE MOFETIL. [Concomitant]
     Active Substance: MYCOPHENOLATE MOFETIL
  6. BORTEZOMIB. [Concomitant]
     Active Substance: BORTEZOMIB
  7. RITUXIMAB. [Concomitant]
     Active Substance: RITUXIMAB
  8. DARATUMUMAB [Concomitant]
     Active Substance: DARATUMUMAB

REACTIONS (3)
  - Off label use [Unknown]
  - Therapy partial responder [Unknown]
  - Neutropenia [Recovering/Resolving]
